FAERS Safety Report 20991671 (Version 3)
Quarter: 2022Q4

REPORT INFORMATION
  Report Type: Spontaneous
  Country: JP (occurrence: JP)
  Receive Date: 20220622
  Receipt Date: 20221025
  Transmission Date: 20230113
  Serious: Yes (Death, Hospitalization, Other)
  Sender: FDA-Public Use
  Company Number: JP-MSD-M2022-15346

PATIENT
  Age: 78 Year
  Sex: Female

DRUGS (1)
  1. KEYTRUDA [Suspect]
     Active Substance: PEMBROLIZUMAB
     Indication: Colon cancer stage IV
     Dosage: 200 MILLIGRAM, Q3W
     Route: 041

REACTIONS (2)
  - Pemphigoid [Recovered/Resolved]
  - Pneumonia aspiration [Fatal]
